FAERS Safety Report 8582838-2 (Version None)
Quarter: 2012Q3

REPORT INFORMATION
  Report Type: 
  Country: None (occurrence: None)
  Receive Date: 20120809
  Receipt Date: 20120801
  Transmission Date: 20120928
  Serious: Yes (Death, Other)
  Sender: FDA-Public Use
  Company Number: JP-BAYER-200914956BYL

PATIENT
  Age: 64 Year
  Sex: Male
  Weight: 62 kg

DRUGS (18)
  1. LAMIVUDINE [Concomitant]
     Dosage: DAILY DOSE 100 MG
     Route: 048
  2. MUCOSTA [Concomitant]
     Indication: PAIN
     Dosage: UNK
     Route: 048
     Dates: start: 20090812
  3. ALDACTONE [Concomitant]
     Dosage: DAILY DOSE 25 MG
     Route: 048
     Dates: start: 20090819, end: 20090908
  4. NEXAVAR [Suspect]
     Dosage: 400 MG/DAY
     Route: 048
     Dates: start: 20090909, end: 20091001
  5. LASIX [Concomitant]
     Dosage: DAILY DOSE 80 MG
     Route: 048
     Dates: start: 20090909
  6. OXYCONTIN [Concomitant]
     Dosage: DAILY DOSE 10 MG
     Route: 048
     Dates: start: 20091106, end: 20091122
  7. NEXAVAR [Suspect]
     Dosage: 400 MG/DAY
     Route: 048
     Dates: start: 20091028, end: 20091030
  8. RABEPRAZOLE SODIUM [Concomitant]
     Dosage: DAILY DOSE 10 MG
     Route: 048
  9. LOXOPROFEN [Concomitant]
     Indication: PAIN
     Dosage: UNK
     Route: 048
     Dates: start: 20090812
  10. FENTANYL-100 [Concomitant]
     Dosage: DAILY DOSE 2.1 MG
     Route: 062
     Dates: start: 20091124, end: 20091124
  11. PASTARON [Concomitant]
     Indication: PROPHYLAXIS
     Dosage: UNK
     Route: 061
     Dates: start: 20090812
  12. NEXAVAR [Suspect]
     Dosage: 600 MG/DAY
     Route: 048
     Dates: start: 20091002, end: 20091027
  13. ENSURE [MINERALS NOS,VITAMINS NOS] [Concomitant]
     Dosage: DAILY DOSE 500 ML
     Route: 048
     Dates: start: 20091104, end: 20091113
  14. HEPSERA [Concomitant]
     Dosage: DAILY DOSE 10 MG
     Route: 048
  15. HYPOCA [Concomitant]
     Dosage: DAILY DOSE 15 MG
     Route: 048
  16. MORPHINE [Concomitant]
     Dosage: DAILY DOSE 5 MG
     Route: 048
     Dates: start: 20091122, end: 20091124
  17. NEXAVAR [Suspect]
     Indication: HEPATIC NEOPLASM MALIGNANT
     Dosage: 800 MG/DAY
     Route: 048
     Dates: start: 20090806, end: 20090908
  18. ALDACTONE [Concomitant]
     Dosage: DAILY DOSE 50 MG
     Route: 048
     Dates: start: 20090909

REACTIONS (6)
  - DIARRHOEA [None]
  - HEPATIC NEOPLASM MALIGNANT [None]
  - DECREASED APPETITE [None]
  - ASCITES [None]
  - ECZEMA [None]
  - HYPERAMMONAEMIA [None]
